FAERS Safety Report 21682141 (Version 1)
Quarter: 2022Q4

REPORT INFORMATION
  Report Type: Spontaneous
  Country: US (occurrence: None)
  Receive Date: 20221204
  Receipt Date: 20221204
  Transmission Date: 20230113
  Serious: Yes (Hospitalization, Disabling)
  Sender: FDA-Public Use
  Company Number: None

PATIENT
  Age: 66 Year
  Sex: Female
  Weight: 75.6 kg

DRUGS (7)
  1. CAMZYOS [Suspect]
     Active Substance: MAVACAMTEN
     Indication: Hypertrophic cardiomyopathy
     Dosage: OTHER QUANTITY : 1 CAPSULE(S);?
     Route: 048
     Dates: start: 20220707
  2. ATENOLOL [Concomitant]
     Active Substance: ATENOLOL
  3. BUPROPION [Concomitant]
     Active Substance: BUPROPION
  4. AMIODARONE [Concomitant]
     Active Substance: AMIODARONE
  5. LORAZEPAM [Concomitant]
     Active Substance: LORAZEPAM
  6. MULTI-VITAMIN [Concomitant]
     Active Substance: .ALPHA.-TOCOPHEROL ACETATE, DL-\ASCORBIC ACID\CYANOCOBALAMIN\FLUORIDE ION\FOLIC ACID\NIACIN\PYRIDOXI
  7. PROBIOTICS NOS [Concomitant]
     Active Substance: PROBIOTICS NOS

REACTIONS (6)
  - Atrial fibrillation [None]
  - Asthenia [None]
  - Thrombosis [None]
  - Fatigue [None]
  - Palpitations [None]
  - Chest pain [None]

NARRATIVE: CASE EVENT DATE: 20221015
